FAERS Safety Report 5346334-8 (Version None)
Quarter: 2007Q2

REPORT INFORMATION
  Report Type: 
  Country: None (occurrence: None)
  Receive Date: 20070605
  Receipt Date: 20070525
  Transmission Date: 20071010
  Serious: Yes (Other)
  Sender: FDA-Public Use
  Company Number: US-PFIZER INC-2007042547

PATIENT
  Sex: Female

DRUGS (10)
  1. CELEBREX [Suspect]
     Indication: INTERVERTEBRAL DISC DEGENERATION
     Dates: start: 19980101, end: 20000101
  2. CELEBREX [Suspect]
     Indication: ARTHRITIS
  3. CHANTIX [Suspect]
     Indication: SMOKING CESSATION THERAPY
  4. HYZAAR [Concomitant]
     Indication: HYPERTENSION
  5. CODEINE SUL TAB [Concomitant]
  6. ACETYLSALICYLIC ACID SRT [Concomitant]
  7. NEXIUM [Concomitant]
  8. ALBUTEROL [Concomitant]
  9. KEPPRA [Concomitant]
  10. DOCUSATE [Concomitant]

REACTIONS (4)
  - AMNESIA [None]
  - CONVULSION [None]
  - ENDOMETRIAL HYPERPLASIA [None]
  - FLATULENCE [None]
